FAERS Safety Report 7072309-7 (Version None)
Quarter: 2010Q4

REPORT INFORMATION
  Report Type: 
  Country: None (occurrence: None)
  Receive Date: 20101029
  Receipt Date: 20100212
  Transmission Date: 20110411
  Serious: No
  Sender: FDA-Public Use
  Company Number: A0838040A

PATIENT
  Age: 48 Year
  Sex: Female

DRUGS (11)
  1. ADVAIR DISKUS 100/50 [Suspect]
     Dosage: 1PUFF TWICE PER DAY
     Route: 055
     Dates: start: 20070101
  2. BLOOD PRESSURE MEDICATION [Concomitant]
  3. LISINOPRIL [Concomitant]
  4. HYZAAR [Concomitant]
  5. HYDROCHLOROTHIAZIDE [Concomitant]
  6. NEXIUM [Concomitant]
  7. FEXOFENADINE HCL [Concomitant]
  8. UNKNOWN MEDICATION [Concomitant]
  9. CLONIDINE [Concomitant]
  10. ALEVE (CAPLET) [Concomitant]
  11. CHANTIX [Concomitant]

REACTIONS (3)
  - COUGH [None]
  - DRUG INEFFECTIVE [None]
  - PRODUCT QUALITY ISSUE [None]
